FAERS Safety Report 24743440 (Version 1)
Quarter: 2024Q4

REPORT INFORMATION
  Report Type: Spontaneous
  Country: US (occurrence: None)
  Receive Date: 20241216
  Receipt Date: 20241216
  Transmission Date: 20250114
  Serious: No
  Sender: Public
  Company Number: None

PATIENT
  Sex: Female

DRUGS (9)
  1. VIGABATRIN [Suspect]
     Active Substance: VIGABATRIN
     Indication: Epilepsy
     Dosage: FREQUENCY : TWICE A DAY;?
     Route: 048
  2. CETIRIZINE HCL [Concomitant]
     Active Substance: CETIRIZINE HYDROCHLORIDE
  3. GABAPENTIN [Concomitant]
     Active Substance: GABAPENTIN
  4. DIAZEPAM [Concomitant]
     Active Substance: DIAZEPAM
  5. NEXIUM [Concomitant]
     Active Substance: ESOMEPRAZOLE MAGNESIUM
  6. CLOBAZAM [Concomitant]
     Active Substance: CLOBAZAM
  7. AMOXICILLIN [Concomitant]
     Active Substance: AMOXICILLIN
  8. CHILDRENS TYLENOL [Concomitant]
     Active Substance: ACETAMINOPHEN
  9. VITAMINS [Concomitant]
     Active Substance: VITAMINS

REACTIONS (5)
  - Pyrexia [None]
  - Therapeutic product effect incomplete [None]
  - Intentional dose omission [None]
  - Ear infection [None]
  - Erythema [None]
